FAERS Safety Report 17247444 (Version 2)
Quarter: 2020Q1

REPORT INFORMATION
  Report Type: Spontaneous
  Country: US (occurrence: US)
  Receive Date: 20200108
  Receipt Date: 20200110
  Transmission Date: 20200409
  Serious: No
  Sender: FDA-Public Use
  Company Number: US-PFIZER INC-2020006864

PATIENT
  Age: 47 Year
  Sex: Female
  Weight: 97.52 kg

DRUGS (4)
  1. GABAPENTIN. [Suspect]
     Active Substance: GABAPENTIN
     Indication: NEURALGIA
     Dosage: 3 DF, 1X/DAY [AT NIGHT]
     Dates: start: 2019
  2. SAVELLA [Concomitant]
     Active Substance: MILNACIPRAN HYDROCHLORIDE
     Indication: PAIN
     Dosage: 3 DF, 1X/DAY (THREE PILLS AT NIGHT)
     Route: 048
  3. SAVELLA [Concomitant]
     Active Substance: MILNACIPRAN HYDROCHLORIDE
     Indication: FIBROMYALGIA
     Dosage: 100 MG, 1X/DAY [TWO PILLS A DAY BY MOUTH]
     Route: 048
  4. SAVELLA [Concomitant]
     Active Substance: MILNACIPRAN HYDROCHLORIDE
     Indication: DEPRESSION

REACTIONS (6)
  - Pinguecula [Unknown]
  - Eye pruritus [Unknown]
  - Product use in unapproved indication [Unknown]
  - Off label use [Unknown]
  - Eye irritation [Unknown]
  - Dry eye [Unknown]

NARRATIVE: CASE EVENT DATE: 2019
